FAERS Safety Report 17917281 (Version 1)
Quarter: 2020Q2

REPORT INFORMATION
  Report Type: Spontaneous
  Country: US (occurrence: US)
  Receive Date: 20200619
  Receipt Date: 20200619
  Transmission Date: 20200714
  Serious: Yes (Other)
  Sender: FDA-Public Use
  Company Number: None

PATIENT

DRUGS (1)
  1. ACYCLOVIR CREAM [Suspect]
     Active Substance: ACYCLOVIR

REACTIONS (3)
  - Product dispensing issue [None]
  - Suspected counterfeit product [None]
  - Suspected product quality issue [None]

NARRATIVE: CASE EVENT DATE: 20200616
